FAERS Safety Report 12864705 (Version 2)
Quarter: 2016Q4

REPORT INFORMATION
  Report Type: Spontaneous
  Country: DE (occurrence: DE)
  Receive Date: 20161020
  Receipt Date: 20161104
  Transmission Date: 20170207
  Serious: Yes (Other)
  Sender: FDA-Public Use
  Company Number: PHHY2016DE141396

PATIENT
  Age: 68 Year
  Sex: Male

DRUGS (1)
  1. ENTRESTO [Suspect]
     Active Substance: SACUBITRIL\VALSARTAN
     Indication: PRODUCT USED FOR UNKNOWN INDICATION
     Dosage: 100 MG, UNK
     Route: 065
     Dates: start: 20160208, end: 20160930

REACTIONS (8)
  - Subclavian vein thrombosis [Unknown]
  - Rhonchi [Unknown]
  - Oedema peripheral [Unknown]
  - Pruritus genital [Unknown]
  - Pruritus generalised [Unknown]
  - Breath sounds [Unknown]
  - Lymphorrhoea [Unknown]
  - Hypotension [Unknown]

NARRATIVE: CASE EVENT DATE: 2016
